FAERS Safety Report 23664355 (Version 1)
Quarter: 2024Q1

REPORT INFORMATION
  Report Type: Spontaneous
  Country: US (occurrence: US)
  Receive Date: 20240322
  Receipt Date: 20240322
  Transmission Date: 20240410
  Serious: No
  Sender: FDA-Public Use
  Company Number: US-SEAGEN-2024SGN02847

PATIENT
  Sex: Female

DRUGS (1)
  1. TIVDAK [Suspect]
     Active Substance: TISOTUMAB VEDOTIN-TFTV
     Indication: Neoplasm malignant
     Dosage: UNK
     Route: 065

REACTIONS (10)
  - Ocular discomfort [Unknown]
  - Dyspnoea [Unknown]
  - Immune system disorder [Unknown]
  - Taste disorder [Unknown]
  - Food aversion [Unknown]
  - Hypoaesthesia [Unknown]
  - Epistaxis [Unknown]
  - Ocular hyperaemia [Unknown]
  - Dry eye [Unknown]
  - Fatigue [Unknown]
